FAERS Safety Report 16089743 (Version 1)
Quarter: 2019Q1

REPORT INFORMATION
  Report Type: Spontaneous
  Country: DK (occurrence: DK)
  Receive Date: 20190319
  Receipt Date: 20190319
  Transmission Date: 20190418
  Serious: Yes (Hospitalization, Disabling)
  Sender: FDA-Public Use
  Company Number: DK-TEVA-2019-DK-1025274

PATIENT
  Age: 63 Year
  Sex: Male

DRUGS (3)
  1. MESTINON [Concomitant]
     Active Substance: PYRIDOSTIGMINE BROMIDE
     Indication: MYASTHENIA GRAVIS
     Dosage: 240 MILLIGRAM DAILY;
     Route: 048
     Dates: start: 20170427, end: 20170620
  2. PREDNISOLONE. [Suspect]
     Active Substance: PREDNISOLONE
     Indication: MYASTHENIA GRAVIS
     Dosage: 1 DOSAGE FORMS DAILY; DOSE: FIRST 25 MG OF DGL, INCREASED TO 50 MG OF DGL. REDUCED TO 40 MG. STRENGT
     Route: 048
     Dates: start: 20170509, end: 20171002
  3. UNIKALK MED D-VITAMIN [Concomitant]
     Indication: MINERAL SUPPLEMENTATION
     Dosage: 1 DOSAGE FORMS DAILY; STRENGTH: 400 MG + 19 MICROGRAMS.
     Route: 048
     Dates: start: 20170509

REACTIONS (3)
  - Femur fracture [Unknown]
  - Arthralgia [Unknown]
  - Osteoporosis [Unknown]

NARRATIVE: CASE EVENT DATE: 20170930
